FAERS Safety Report 5606588-7 (Version None)
Quarter: 2008Q1

REPORT INFORMATION
  Report Type: 
  Country: None (occurrence: None)
  Receive Date: 20080125
  Receipt Date: 20080109
  Transmission Date: 20080703
  Serious: Yes (Other)
  Sender: FDA-Public Use
  Company Number: CTI_00936_2008

PATIENT
  Sex: Female

DRUGS (4)
  1. ZYFLO [Suspect]
     Indication: SINUSITIS
     Dosage: (2 DF BID)
     Dates: start: 20080105, end: 20080107
  2. CENTRUM /00554501/ [Concomitant]
  3. OSCAL /00108001/ [Concomitant]
  4. ECOTRIN [Concomitant]

REACTIONS (3)
  - CHEST DISCOMFORT [None]
  - RASH [None]
  - WHEEZING [None]
